FAERS Safety Report 20244856 (Version 1)
Quarter: 2021Q4

REPORT INFORMATION
  Report Type: Spontaneous
  Country: GB (occurrence: GB)
  Receive Date: 20211229
  Receipt Date: 20211229
  Transmission Date: 20220303
  Serious: Yes (Hospitalization, Disabling, Other)
  Sender: FDA-Public Use
  Company Number: GB-MHRA-EYC 00268891

PATIENT
  Age: 65 Year
  Sex: Female
  Weight: 78.92 kg

DRUGS (7)
  1. NORTRIPTYLINE [Suspect]
     Active Substance: NORTRIPTYLINE
     Indication: Fibromyalgia
     Dosage: UNK(2X 10MG THEN 3X 10MG)
     Route: 048
     Dates: start: 2016
  2. CALCIUM [Concomitant]
     Active Substance: CALCIUM
     Indication: Product used for unknown indication
     Dosage: UNK(POWDER)
     Route: 065
  3. HERBALS\LINSEED OIL [Concomitant]
     Active Substance: HERBALS\LINSEED OIL
     Indication: Product used for unknown indication
     Dosage: UNK(OIL CAPSULES)
     Route: 065
  4. HERBALS\UNCARIA TOMENTOSA WHOLE [Concomitant]
     Active Substance: HERBALS\UNCARIA TOMENTOSA WHOLE
     Indication: Product used for unknown indication
     Dosage: UNK
     Route: 065
  5. VITAMIN C [Concomitant]
     Active Substance: ASCORBIC ACID
     Indication: Product used for unknown indication
     Dosage: UNK(POWDER)
     Route: 065
  6. VITAMIN B12 [Concomitant]
     Active Substance: CYANOCOBALAMIN
     Indication: Product used for unknown indication
     Dosage: UNK(LIQUID)
     Route: 065
  7. ZINC [Concomitant]
     Active Substance: ZINC
     Indication: Product used for unknown indication
     Dosage: UNK(LIQUID)
     Route: 065

REACTIONS (7)
  - Hypoaesthesia oral [Unknown]
  - Aphonia [Recovered/Resolved with Sequelae]
  - Anaphylactic reaction [Not Recovered/Not Resolved]
  - Aphasia [Not Recovered/Not Resolved]
  - Dysphagia [Not Recovered/Not Resolved]
  - Oropharyngeal pain [Unknown]
  - Throat irritation [Unknown]

NARRATIVE: CASE EVENT DATE: 20160101
